FAERS Safety Report 9646424 (Version 1)
Quarter: 2013Q4

REPORT INFORMATION
  Report Type: Spontaneous
  Country: CN (occurrence: CN)
  Receive Date: 20131025
  Receipt Date: 20131025
  Transmission Date: 20140711
  Serious: Yes (Other)
  Sender: FDA-Public Use
  Company Number: CN-009507513-1310CHN011862

PATIENT
  Age: 58 Year
  Sex: Female

DRUGS (1)
  1. SINGULAIR (LOCAL DIST) [Suspect]
     Indication: RHINITIS ALLERGIC
     Dosage: 10 MG, QPM
     Route: 048

REACTIONS (1)
  - Haematuria [Recovered/Resolved]
